FAERS Safety Report 9807581 (Version 1)
Quarter: 2014Q1

REPORT INFORMATION
  Report Type: Spontaneous
  Country: US (occurrence: US)
  Receive Date: 20140110
  Receipt Date: 20140110
  Transmission Date: 20141002
  Serious: No
  Sender: FDA-Public Use
  Company Number: US-SANOFI-AVENTIS-2013SA043647

PATIENT
  Age: 57 Year
  Sex: Female

DRUGS (7)
  1. PLAVIX [Suspect]
     Indication: CEREBROVASCULAR ACCIDENT
  2. WARFARIN [Suspect]
     Indication: CARDIOVASCULAR EVENT PROPHYLAXIS
  3. AMIODARONE [Concomitant]
  4. ISOSORBIDE [Concomitant]
  5. CALCIUM [Concomitant]
  6. PRAVASTATIN [Concomitant]
  7. RANITIDINE [Concomitant]

REACTIONS (1)
  - Hypertension [Unknown]
